FAERS Safety Report 7979522-2 (Version None)
Quarter: 2011Q4

REPORT INFORMATION
  Report Type: 
  Country: None (occurrence: None)
  Receive Date: 20111214
  Receipt Date: 20111209
  Transmission Date: 20120403
  Serious: Yes (Life-Threatening, Hospitalization, Other)
  Sender: FDA-Public Use
  Company Number: PHHY2008JP30087

PATIENT
  Sex: Male
  Weight: 51 kg

DRUGS (4)
  1. JUVELA [Concomitant]
     Dosage: 600 MG, UNK
     Route: 048
     Dates: end: 20090604
  2. ALLOPURINOL [Concomitant]
     Dosage: 100 MG, UNK
     Route: 048
     Dates: end: 20090604
  3. EXJADE [Suspect]
     Dosage: 1000 MG, QD
     Route: 048
     Dates: start: 20090214, end: 20090226
  4. EXJADE [Suspect]
     Indication: IRON OVERLOAD
     Dosage: 1000 MG, QD
     Route: 048
     Dates: start: 20080927, end: 20081016

REACTIONS (4)
  - CONDITION AGGRAVATED [None]
  - WHITE BLOOD CELL COUNT INCREASED [None]
  - RENAL FAILURE ACUTE [None]
  - LIVER DISORDER [None]
